FAERS Safety Report 8369852-7 (Version None)
Quarter: 2012Q2

REPORT INFORMATION
  Report Type: 
  Country: None (occurrence: None)
  Receive Date: 20120518
  Receipt Date: 20120510
  Transmission Date: 20120825
  Serious: Yes (Hospitalization, Other)
  Sender: FDA-Public Use
  Company Number: FR-PFIZER INC-FR-WYE-G05657310

PATIENT
  Age: 78 Year
  Sex: Female

DRUGS (4)
  1. ARICEPT [Suspect]
     Indication: DEMENTIA ALZHEIMER'S TYPE
     Dosage: 5.0 MG, 2X/DAY
     Route: 048
     Dates: end: 20100208
  2. LAMICTAL [Suspect]
     Dosage: 200.0 MG, 1X/DAY
     Route: 048
     Dates: end: 20100205
  3. EFFEXOR XR [Suspect]
     Dosage: 75.0 MG, 1X/DAY
     Route: 048
     Dates: end: 20100208
  4. OXAZEPAM [Suspect]
     Dosage: 10.0 MG, 1X/DAY
     Route: 048
     Dates: end: 20100205

REACTIONS (7)
  - LYMPHOCYTE COUNT DECREASED [None]
  - RASH MACULO-PAPULAR [None]
  - EOSINOPHILIA [None]
  - TOXIC SKIN ERUPTION [None]
  - FALL [None]
  - PYREXIA [None]
  - HEPATIC ENZYME INCREASED [None]
